FAERS Safety Report 9366029 (Version 1)
Quarter: 2013Q2

REPORT INFORMATION
  Report Type: Spontaneous
  Country: FR (occurrence: FR)
  Receive Date: 20130625
  Receipt Date: 20130625
  Transmission Date: 20140414
  Serious: Yes (Death, Hospitalization)
  Sender: FDA-Public Use
  Company Number: FR-TEVA-414694ISR

PATIENT
  Age: 75 Year
  Sex: Female

DRUGS (2)
  1. FUROSEMIDE [Suspect]
     Dosage: LONG-TERM TREATMENT : SEVERAL YEARS
  2. INSULIN [Concomitant]
     Indication: DIABETES MELLITUS
     Dosage: 2 DOSAGE FORMS DAILY;

REACTIONS (2)
  - Acute pulmonary oedema [Fatal]
  - Hospitalisation [Recovered/Resolved]
